FAERS Safety Report 8716268 (Version 2)
Quarter: 2013Q4

REPORT INFORMATION
  Report Type: Spontaneous
  Country: GB (occurrence: GB)
  Receive Date: 20120810
  Receipt Date: 20131031
  Transmission Date: 20140711
  Serious: Yes (Disabling, Other)
  Sender: FDA-Public Use
  Company Number: GB-009507513-1208GBR001812

PATIENT
  Age: 17 Year
  Sex: Female

DRUGS (1)
  1. IMPLANON [Suspect]
     Indication: CONTRACEPTION
     Dosage: UNK
     Dates: start: 20110617

REACTIONS (8)
  - Paranoia [Recovering/Resolving]
  - Mood swings [Recovering/Resolving]
  - Acne [Unknown]
  - Fatigue [Unknown]
  - Menometrorrhagia [Recovering/Resolving]
  - Abdominal pain upper [Recovered/Resolved]
  - Breast tenderness [Unknown]
  - Weight increased [Unknown]
